FAERS Safety Report 10231061 (Version 2)
Quarter: 2014Q2

REPORT INFORMATION
  Report Type: Report from Study
  Country: PK (occurrence: PK)
  Receive Date: 20140611
  Receipt Date: 20140611
  Transmission Date: 20141212
  Serious: Yes (Death, Life-Threatening)
  Sender: FDA-Public Use
  Company Number: PK-SANOFI-AVENTIS-2013SA036546

PATIENT
  Age: 52 Year
  Sex: Female
  Weight: 60 kg

DRUGS (6)
  1. LANTUS SOLOSTAR [Suspect]
     Indication: TYPE 2 DIABETES MELLITUS
     Route: 058
     Dates: end: 20130327
  2. SOLOSTAR [Concomitant]
     Indication: DEVICE THERAPY
     Dates: end: 20130327
  3. ACE INHIBITOR NOS [Concomitant]
     Indication: HYPERTENSION
     Route: 048
     Dates: end: 20130327
  4. HMG COA REDUCTASE INHIBITORS [Concomitant]
     Indication: HYPERCHOLESTEROLAEMIA
     Route: 048
     Dates: end: 20130327
  5. HUMULIN R [Concomitant]
     Indication: TYPE 2 DIABETES MELLITUS
     Route: 058
     Dates: end: 20130327
  6. CARBOHYDRATES [Concomitant]
     Route: 048

REACTIONS (5)
  - Hyperglycaemia [Fatal]
  - Pyrexia [Fatal]
  - Hypoglycaemia [Recovered/Resolved]
  - Vertigo [Recovered/Resolved]
  - Hyperhidrosis [Recovered/Resolved]
